FAERS Safety Report 9880688 (Version 1)
Quarter: 2014Q1

REPORT INFORMATION
  Report Type: Spontaneous
  Country: US (occurrence: None)
  Receive Date: 20140206
  Receipt Date: 20140206
  Transmission Date: 20141002
  Serious: Yes (Other)
  Sender: FDA-Public Use
  Company Number: None

PATIENT
  Age: 64 Year
  Sex: Female
  Weight: 37.51 kg

DRUGS (1)
  1. CELEBREX [Suspect]
     Indication: ARTHRALGIA
     Dosage: CELEBREX 200MG  ONCE DAILY BY MOUTH
     Route: 048
     Dates: start: 20131120

REACTIONS (6)
  - Fatigue [None]
  - Pain [None]
  - Headache [None]
  - Photosensitivity reaction [None]
  - Cough [None]
  - Drug hypersensitivity [None]
